FAERS Safety Report 11069751 (Version 2)
Quarter: 2015Q3

REPORT INFORMATION
  Report Type: Spontaneous
  Country: IT (occurrence: IT)
  Receive Date: 20150427
  Receipt Date: 20150707
  Transmission Date: 20151125
  Serious: Yes (Other)
  Sender: FDA-Public Use
  Company Number: IT-PFIZER INC-2015139595

PATIENT
  Age: 27 Year
  Sex: Female

DRUGS (2)
  1. LYRICA [Suspect]
     Active Substance: PREGABALIN
     Indication: GENERALISED ANXIETY DISORDER
     Dosage: 150 MG,TOTAL
     Route: 048
     Dates: start: 20150201, end: 20150201
  2. DICLOREUM [Suspect]
     Active Substance: DICLOFENAC SODIUM
     Indication: BACK PAIN
     Dosage: 150 MG, TOTAL
     Route: 048
     Dates: start: 20150201, end: 20150201

REACTIONS (4)
  - Papule [Recovered/Resolved]
  - Pain in extremity [Recovered/Resolved]
  - Cyanosis [Recovered/Resolved]
  - Oedema peripheral [Recovered/Resolved]

NARRATIVE: CASE EVENT DATE: 20150201
